FAERS Safety Report 12605660 (Version 1)
Quarter: 2016Q3

REPORT INFORMATION
  Report Type: Spontaneous
  Country: US (occurrence: None)
  Receive Date: 20160728
  Receipt Date: 20160728
  Transmission Date: 20161109
  Serious: Yes (Death)
  Sender: FDA-Public Use
  Company Number: None

PATIENT
  Age: 69 Year
  Sex: Male
  Weight: 80 kg

DRUGS (1)
  1. RITUXAN [Suspect]
     Active Substance: RITUXIMAB
     Indication: DIFFUSE LARGE B-CELL LYMPHOMA
     Route: 041
     Dates: start: 20160721, end: 20160721

REACTIONS (6)
  - Lactic acidosis [None]
  - Hypotension [None]
  - Hypoperfusion [None]
  - Shock [None]
  - Tumour lysis syndrome [None]
  - Arrhythmia [None]

NARRATIVE: CASE EVENT DATE: 20160721
